FAERS Safety Report 4694081-8 (Version None)
Quarter: 2005Q2

REPORT INFORMATION
  Report Type: 
  Country: None (occurrence: None)
  Receive Date: 20050616
  Receipt Date: 20050608
  Transmission Date: 20051028
  Serious: Yes (Death)
  Sender: FDA-Public Use
  Company Number: 215246

PATIENT
  Age: 55 Year
  Sex: Female

DRUGS (10)
  1. XOLAIR [Suspect]
     Indication: ASTHMA
     Dosage: 300 MG, Q2W,
     Dates: start: 20031101
  2. ALBUTEROL (ALBUTEROL, ALBUTEROL SULFATE) [Concomitant]
  3. ATROVENT [Concomitant]
  4. SINGULAIR [Concomitant]
  5. PREDNISONE (PREDNISONE) [Concomitant]
  6. FOSAMAX [Concomitant]
  7. OS-CAL (CALCIUM CARBONATE) [Concomitant]
  8. NEXIUM [Concomitant]
  9. ADVAIR (SALMETEROL XINAFOATE, FLUTICASONE PROPIONATE) [Concomitant]
  10. BENICAR [Concomitant]

REACTIONS (1)
  - DEATH [None]
